FAERS Safety Report 16613278 (Version 2)
Quarter: 2019Q3

REPORT INFORMATION
  Report Type: Spontaneous
  Country: US (occurrence: US)
  Receive Date: 20190722
  Receipt Date: 20190916
  Transmission Date: 20191004
  Serious: No
  Sender: FDA-Public Use
  Company Number: US-AMGEN-USASP2019114358

PATIENT
  Age: 61 Year
  Sex: Female

DRUGS (2)
  1. ENBREL [Suspect]
     Active Substance: ETANERCEPT
     Dosage: 50 MILLIGRAM, QWK
     Route: 065
     Dates: start: 2019
  2. ENBREL [Suspect]
     Active Substance: ETANERCEPT
     Indication: RHEUMATOID ARTHRITIS
     Dosage: 50 MILLIGRAM, QWK
     Route: 065
     Dates: start: 201906, end: 2019

REACTIONS (11)
  - Asthenia [Unknown]
  - Injection site pain [Unknown]
  - Wrong technique in product usage process [Unknown]
  - Acne [Unknown]
  - Fatigue [Unknown]
  - Injection site pruritus [Unknown]
  - Injection site induration [Unknown]
  - Rash [Unknown]
  - Injection site swelling [Unknown]
  - Nasopharyngitis [Unknown]
  - Injection site warmth [Unknown]

NARRATIVE: CASE EVENT DATE: 2019
